FAERS Safety Report 21903649 (Version 1)
Quarter: 2023Q1

REPORT INFORMATION
  Report Type: Report from Study
  Country: IN (occurrence: IN)
  Receive Date: 20230124
  Receipt Date: 20230124
  Transmission Date: 20230417
  Serious: Yes (Hospitalization)
  Sender: FDA-Public Use
  Company Number: IN-002147023-NVSC2023IN013670

PATIENT
  Age: 9 Year
  Sex: Male

DRUGS (1)
  1. NEORAL [Suspect]
     Active Substance: CYCLOSPORINE
     Indication: Liver transplant
     Dosage: 175 MG (100 MG MORNING, 75 MG EVENING)
     Route: 065
     Dates: start: 20221119

REACTIONS (2)
  - Abdominal pain [Unknown]
  - Personality change [Unknown]

NARRATIVE: CASE EVENT DATE: 20230115
